FAERS Safety Report 6920197-9 (Version None)
Quarter: 2010Q3

REPORT INFORMATION
  Report Type: 
  Country: None (occurrence: None)
  Receive Date: 20100809
  Receipt Date: 20100801
  Transmission Date: 20110219
  Serious: Yes (Other)
  Sender: FDA-Public Use
  Company Number: 2010SP041881

PATIENT
  Age: 16 Year
  Sex: Female
  Weight: 68 kg

DRUGS (2)
  1. NUVARING [Suspect]
     Indication: CONTRACEPTION
     Dosage: QM;VAG
     Route: 067
     Dates: start: 20100630
  2. ARADIX [Concomitant]

REACTIONS (4)
  - HYPOTENSION [None]
  - METRORRHAGIA [None]
  - SYNCOPE [None]
  - WITHDRAWAL BLEED [None]
